FAERS Safety Report 8888209 (Version 2)
Quarter: 2012Q4

REPORT INFORMATION
  Report Type: 
  Country: US (occurrence: US)
  Receive Date: 20121106
  Receipt Date: 20121205
  Transmission Date: 20130627
  Serious: Yes (Other)
  Sender: FDA-Public Use
  Company Number: US-SANOFI-AVENTIS-2012SA080591

PATIENT
  Age: 73 Year
  Sex: Female
  Weight: 78.01 kg

DRUGS (4)
  1. LANTUS [Suspect]
     Indication: DIABETES
     Dosage: Dose:20 unit(s)
     Route: 058
     Dates: start: 2011
  2. LANTUS [Suspect]
     Indication: DIABETES
     Dosage: Dose:20 unit(s)
     Route: 058
     Dates: start: 2011
  3. LANTUS [Suspect]
     Indication: DIABETES
     Dosage: Dose:20 unit(s)
     Route: 058
     Dates: start: 2011
  4. ALL OTHER THERAPEUTIC PRODUCTS [Concomitant]
     Indication: DEMENTIA
     Route: 065

REACTIONS (2)
  - Benign neoplasm of thyroid gland [Unknown]
  - Benign neoplasm [Unknown]
